FAERS Safety Report 4600512-1 (Version None)
Quarter: 2005Q1

REPORT INFORMATION
  Report Type: 
  Country: None (occurrence: None)
  Receive Date: 20050304
  Receipt Date: 20050221
  Transmission Date: 20050727
  Serious: Yes (Hospitalization, Other)
  Sender: FDA-Public Use
  Company Number: HQWYE500123FEB05

PATIENT
  Age: 79 Year
  Sex: Male

DRUGS (1)
  1. MINOMYCIN (MINOCYCLINE, INJECTION) [Suspect]
     Indication: PNEUMONIA
     Dosage: 400 MG DAILY INTRAVENOUS DRIP
     Route: 041
     Dates: start: 20050207, end: 20050208

REACTIONS (1)
  - HEPATIC NECROSIS [None]
